FAERS Safety Report 9955212 (Version 2)
Quarter: 2014Q1

REPORT INFORMATION
  Report Type: Spontaneous
  Country: US (occurrence: US)
  Receive Date: 20140304
  Receipt Date: 20140304
  Transmission Date: 20141002
  Serious: Yes (Other)
  Sender: FDA-Public Use
  Company Number: PHHY2013US120193

PATIENT
  Age: 16 Year
  Sex: Male

DRUGS (20)
  1. LIORESAL INTRATECAL [Suspect]
     Indication: MUSCLE SPASTICITY
     Dosage: UNK UKN, UNK
     Route: 037
  2. LIORESAL INTRATECAL [Suspect]
     Dosage: 1267.8 UG DAY
     Route: 037
  3. LIORESAL INTRATECAL [Suspect]
     Dosage: UNK UKN, UNK
     Route: 037
  4. BACLOFEN [Suspect]
     Dosage: UNK UKN, UNK
     Route: 048
  5. CLINDAMYCIN [Suspect]
     Dosage: UNK UKN, UNK
  6. ZINC OXIDE [Suspect]
     Dosage: UNK UKN, UNK
  7. MYSOLINE [Suspect]
     Dosage: UNK UKN, UNK
  8. ALBUTEROL [Suspect]
     Dosage: UNK UKN, UNK
  9. ALIGN [Suspect]
     Dosage: UNK UKN, UNK
  10. BENADRYL [Suspect]
     Dosage: UNK UKN, UNK
  11. CLOBEX [Suspect]
     Dosage: UNK UKN, UNK
  12. DILANTIN [Suspect]
     Dosage: UNK UKN, UNK
  13. GAS X [Suspect]
     Dosage: UNK UKN, UNK
  14. GLYCOPYRROLATE [Suspect]
     Dosage: UNK UKN, UNK
  15. LEVOTHYROXINE [Suspect]
     Dosage: UNK UKN, UNK
  16. ATIVAN [Suspect]
     Dosage: UNK UKN, UNK
  17. MVI [Suspect]
     Dosage: UNK UKN, UNK
  18. MYLANTA [Suspect]
     Dosage: UNK UKN, UNK
  19. MIRALAX [Suspect]
     Dosage: UNK UKN, UNK
  20. PREVACID [Suspect]
     Dosage: UNK UKN, UNK

REACTIONS (15)
  - Staphylococcal infection [Unknown]
  - Clonus [Unknown]
  - Pulmonary congestion [Recovered/Resolved]
  - Irritability [Recovered/Resolved]
  - Tachycardia [Unknown]
  - Pneumonia streptococcal [Recovered/Resolved]
  - Purulent discharge [Unknown]
  - Wound dehiscence [Unknown]
  - Malaise [Unknown]
  - Convulsion [Unknown]
  - Pyrexia [Recovered/Resolved]
  - Hypertonia [Unknown]
  - Implant site infection [Unknown]
  - Muscle spasticity [Unknown]
  - Drug withdrawal syndrome [Unknown]
